FAERS Safety Report 6332904-7 (Version None)
Quarter: 2009Q3

REPORT INFORMATION
  Report Type: 
  Country: None (occurrence: None)
  Receive Date: 20090827
  Receipt Date: 20090827
  Transmission Date: 20100115
  Serious: No
  Sender: FDA-Public Use
  Company Number: None

PATIENT

DRUGS (2)
  1. INSTA-CHAR (AQUEOUS BASE) [Suspect]
     Dosage: UNIT DOSE BOTTLE
     Route: 048
  2. INSTA-CHAR (SORBITOL BASE) [Suspect]
     Dosage: UNIT DOSE BOTTLE
     Route: 048

REACTIONS (4)
  - INTERCEPTED DRUG DISPENSING ERROR [None]
  - MEDICATION ERROR [None]
  - PRODUCT LABEL ISSUE [None]
  - PRODUCT OUTER PACKAGING ISSUE [None]
